FAERS Safety Report 5588823-7 (Version None)
Quarter: 2008Q1

REPORT INFORMATION
  Report Type: 
  Country: None (occurrence: None)
  Receive Date: 20080111
  Receipt Date: 20080103
  Transmission Date: 20080703
  Serious: Yes (Hospitalization)
  Sender: FDA-Public Use
  Company Number: PFIZER INC-2008000988

PATIENT
  Sex: Female

DRUGS (1)
  1. SUTENT [Suspect]
     Indication: SARCOMA
     Route: 048

REACTIONS (1)
  - CONVULSION [None]
